FAERS Safety Report 9705671 (Version 2)
Quarter: 2013Q4

REPORT INFORMATION
  Report Type: Spontaneous
  Country: US (occurrence: US)
  Receive Date: 20131122
  Receipt Date: 20131122
  Transmission Date: 20140711
  Serious: No
  Sender: FDA-Public Use
  Company Number: US-GILEAD-2008-0017177

PATIENT
  Sex: Female
  Weight: 65.77 kg

DRUGS (11)
  1. LETAIRIS [Suspect]
     Indication: PULMONARY ARTERIAL HYPERTENSION
     Route: 048
     Dates: start: 20080614
  2. LASIX [Concomitant]
     Route: 048
  3. LASIX [Concomitant]
     Route: 048
  4. REVATIO [Concomitant]
     Route: 048
  5. CARDIZEM CD [Concomitant]
     Route: 048
  6. LANTUS [Concomitant]
     Route: 058
  7. NOVOLOG [Concomitant]
     Route: 058
  8. BENICAR [Concomitant]
     Route: 048
  9. VYTORIN [Concomitant]
     Route: 048
  10. WARFARIN [Concomitant]
     Route: 048
  11. ASPIRIN [Concomitant]
     Route: 048

REACTIONS (3)
  - Nasal dryness [None]
  - Dry throat [None]
  - Adverse event [None]
